FAERS Safety Report 6204497-6 (Version None)
Quarter: 2009Q2

REPORT INFORMATION
  Report Type: 
  Country: None (occurrence: None)
  Receive Date: 20090522
  Receipt Date: 20090511
  Transmission Date: 20091009
  Serious: Yes (Death)
  Sender: FDA-Public Use
  Company Number: 235267K09USA

PATIENT
  Age: 61 Year
  Sex: Female

DRUGS (2)
  1. REBIF [Suspect]
     Indication: MULTIPLE SCLEROSIS
     Dosage: 44 MCG, 3 IN 1 WEEKS, SUBCUTANEOUS
     Route: 058
     Dates: start: 20030609, end: 20080801
  2. NALTREXONE (NALTREXONE) [Suspect]
     Dates: start: 20080801, end: 20080827

REACTIONS (2)
  - MONOPARESIS [None]
  - MYOCARDIAL INFARCTION [None]
